FAERS Safety Report 11617309 (Version 4)
Quarter: 2016Q1

REPORT INFORMATION
  Report Type: Spontaneous
  Country: JP (occurrence: JP)
  Receive Date: 20151009
  Receipt Date: 20160115
  Transmission Date: 20160525
  Serious: Yes (Hospitalization, Disabling)
  Sender: FDA-Public Use
  Company Number: JP-JNJFOC-20151005185

PATIENT
  Age: 75 Year
  Sex: Female
  Weight: 51 kg

DRUGS (10)
  1. ALSETIN [Concomitant]
     Indication: DYSLIPIDAEMIA
     Route: 048
  2. JANUVIA [Concomitant]
     Active Substance: SITAGLIPTIN PHOSPHATE
     Route: 048
     Dates: start: 20150926
  3. AMLODIPINE [Suspect]
     Active Substance: AMLODIPINE BESYLATE
     Indication: HYPERTENSION
     Route: 048
  4. MERISLON [Concomitant]
     Active Substance: BETAHISTINE MESILATE
     Indication: DIZZINESS
     Dosage: AS REQUIRED
     Route: 048
     Dates: start: 20150822, end: 20151002
  5. DEPAS [Concomitant]
     Active Substance: ETIZOLAM
     Indication: INSOMNIA
     Dosage: BEFORE SLEEP
     Route: 048
     Dates: start: 20150822, end: 20151002
  6. BOFUTSUSHOSAN [Concomitant]
     Active Substance: HERBALS
     Indication: DIZZINESS
     Route: 048
  7. ADETPHOS [Concomitant]
     Active Substance: ADENOSINE TRIPHOSPHATE
     Indication: DIZZINESS
     Dosage: DIVIDE INTO 3 DOSES AFTER MEALS.
     Route: 048
     Dates: start: 20150822, end: 20151002
  8. METGLUCO [Concomitant]
     Active Substance: METFORMIN HYDROCHLORIDE
     Route: 048
  9. CANAGLU [Suspect]
     Active Substance: CANAGLIFLOZIN
     Indication: TYPE 2 DIABETES MELLITUS
     Route: 048
     Dates: start: 20150919, end: 20150924
  10. CEVOZYL [Concomitant]
     Indication: HYPERTENSION
     Route: 048

REACTIONS (1)
  - IIIrd nerve paralysis [Not Recovered/Not Resolved]

NARRATIVE: CASE EVENT DATE: 20150922
